FAERS Safety Report 8129315-0 (Version None)
Quarter: 2012Q1

REPORT INFORMATION
  Report Type: 
  Country: None (occurrence: None)
  Receive Date: 20120210
  Receipt Date: 20120207
  Transmission Date: 20120608
  Serious: Yes (Death, Other)
  Sender: FDA-Public Use
  Company Number: PHHY2012AU010269

PATIENT
  Age: 53 Year
  Sex: Female

DRUGS (1)
  1. HYDROXYCHLOROQUINE SULFATE [Suspect]
     Indication: SYSTEMIC LUPUS ERYTHEMATOSUS

REACTIONS (17)
  - RENAL FAILURE [None]
  - PARAESTHESIA [None]
  - CARDIAC FAILURE [None]
  - HYPOTENSION [None]
  - MUSCULAR WEAKNESS [None]
  - PROTEINURIA [None]
  - RESPIRATORY FAILURE [None]
  - CARDIAC ARREST [None]
  - PERIPHERAL MOTOR NEUROPATHY [None]
  - MYOSITIS [None]
  - ALTERED STATE OF CONSCIOUSNESS [None]
  - HYPOGLYCAEMIA [None]
  - PERIPHERAL SENSORY NEUROPATHY [None]
  - HYPERTENSIVE CRISIS [None]
  - MYOPATHY [None]
  - NEPHROPATHY [None]
  - DYSPHAGIA [None]
